FAERS Safety Report 20711390 (Version 9)
Quarter: 2024Q1

REPORT INFORMATION
  Report Type: Report from Study
  Country: US (occurrence: US)
  Receive Date: 20220414
  Receipt Date: 20240207
  Transmission Date: 20240410
  Serious: Yes (Other)
  Sender: FDA-Public Use
  Company Number: US-NOVARTISTESTPH-NVSC2022US085616

PATIENT
  Age: 5 Year
  Sex: Male

DRUGS (3)
  1. ILARIS [Suspect]
     Active Substance: CANAKINUMAB
     Indication: Pyrexia
     Dosage: 60 MG, QMO
     Route: 058
     Dates: start: 20220107
  2. ILARIS [Suspect]
     Active Substance: CANAKINUMAB
     Dosage: 60 MG, Q4W
     Route: 058
     Dates: start: 20220117
  3. ILARIS [Suspect]
     Active Substance: CANAKINUMAB
     Dosage: 90 MG, QMO
     Route: 058
     Dates: start: 20220107

REACTIONS (5)
  - Pneumonia [Unknown]
  - Pharyngitis streptococcal [Unknown]
  - Illness [Unknown]
  - Urticaria [Recovered/Resolved]
  - Inappropriate schedule of product administration [Unknown]

NARRATIVE: CASE EVENT DATE: 20220406
